APPROVED DRUG PRODUCT: PREVDUO
Active Ingredient: GLYCOPYRROLATE; NEOSTIGMINE METHYLSULFATE
Strength: 0.6MG/3ML (0.2MG/ML);3MG/3ML (1MG/ML)
Dosage Form/Route: SOLUTION;INTRAVENOUS
Application: N216903 | Product #001
Applicant: AZURITY PHARMACEUTICALS INC
Approved: Feb 23, 2023 | RLD: Yes | RS: Yes | Type: RX

PATENTS:
Patent 11110054 | Expires: Oct 25, 2038
Patent 11938217 | Expires: Oct 25, 2038
Patent 10456354 | Expires: Oct 25, 2038
Patent 12151020 | Expires: Oct 25, 2038
Patent 12383491 | Expires: Oct 25, 2038